FAERS Safety Report 24839319 (Version 1)
Quarter: 2025Q1

REPORT INFORMATION
  Report Type: Other
  Country: JP (occurrence: JP)
  Receive Date: 20250114
  Receipt Date: 20250114
  Transmission Date: 20250409
  Serious: Yes (Other)
  Sender: DEXCEL
  Company Number: JP-DEXPHARM-2025-0492

PATIENT
  Sex: Male

DRUGS (1)
  1. VIGABATRIN [Suspect]
     Active Substance: VIGABATRIN

REACTIONS (3)
  - Condition aggravated [Recovered/Resolved]
  - Interstitial lung disease [Unknown]
  - Magnetic resonance imaging head abnormal [Recovered/Resolved]
